FAERS Safety Report 20916011 (Version 1)
Quarter: 2022Q2

REPORT INFORMATION
  Report Type: Spontaneous
  Country: US (occurrence: US)
  Receive Date: 20220604
  Receipt Date: 20220604
  Transmission Date: 20220721
  Serious: No
  Sender: FDA-Public Use
  Company Number: US-SA-SAC20220531001146

PATIENT
  Sex: Male

DRUGS (5)
  1. DUPIXENT [Suspect]
     Active Substance: DUPILUMAB
     Indication: Dermatitis atopic
     Dosage: 300 MG, QOW
     Route: 058
     Dates: start: 2022
  2. VISTARIL [Concomitant]
     Active Substance: HYDROXYZINE PAMOATE
  3. HYDROCORTISONE [Concomitant]
     Active Substance: HYDROCORTISONE
  4. TACROLIMUS [Concomitant]
     Active Substance: TACROLIMUS
  5. AUGMENTED BETAMETHASONE DIPROPIONATE [Concomitant]

REACTIONS (1)
  - Drug ineffective [Unknown]

NARRATIVE: CASE EVENT DATE: 20220101
